FAERS Safety Report 23793953 (Version 1)
Quarter: 2024Q2

REPORT INFORMATION
  Report Type: Spontaneous
  Country: US (occurrence: US)
  Receive Date: 20240429
  Receipt Date: 20240429
  Transmission Date: 20240716
  Serious: No
  Sender: FDA-Public Use
  Company Number: US-DRL-USA-LIT/USA/24/0006298

PATIENT
  Age: 36 Year
  Sex: Male

DRUGS (5)
  1. DOXYCYCLINE [Suspect]
     Active Substance: DOXYCYCLINE
     Indication: Dermatitis atopic
  2. TRIAMCINOLONE [Concomitant]
     Active Substance: TRIAMCINOLONE
     Indication: Dermatitis atopic
     Route: 030
  3. CRISABOROLE [Concomitant]
     Active Substance: CRISABOROLE
     Indication: Dermatitis atopic
  4. FLURANDRENOLIDE [Concomitant]
     Active Substance: FLURANDRENOLIDE
     Indication: Dermatitis atopic
     Dosage: OCCLUSIVE TAPE
     Route: 061
  5. BETAMETHASONE [Concomitant]
     Active Substance: BETAMETHASONE\BETAMETHASONE DIPROPIONATE
     Indication: Dermatitis atopic

REACTIONS (1)
  - Drug ineffective for unapproved indication [Unknown]
